FAERS Safety Report 16941988 (Version 1)
Quarter: 2019Q4

REPORT INFORMATION
  Report Type: Spontaneous
  Country: US (occurrence: US)
  Receive Date: 20191021
  Receipt Date: 20191021
  Transmission Date: 20200122
  Serious: Yes (Death, Hospitalization, Other)
  Sender: FDA-Public Use
  Company Number: US-SA-2019SA288544

PATIENT
  Age: 76 Year
  Sex: Male

DRUGS (3)
  1. PEMBROLIZUMAB. [Suspect]
     Active Substance: PEMBROLIZUMAB
     Indication: ANAPLASTIC THYROID CANCER
     Dosage: 200 MG, Q3W
     Route: 042
  2. DOCETAXEL. [Suspect]
     Active Substance: DOCETAXEL
     Indication: ANAPLASTIC THYROID CANCER
     Dosage: 20 MG/M2, QW
     Route: 042
  3. DOXORUBICIN [Suspect]
     Active Substance: DOXORUBICIN
     Indication: ANAPLASTIC THYROID CANCER
     Dosage: 20 MG/M2, QW
     Route: 042

REACTIONS (7)
  - Diarrhoea [Unknown]
  - Fatigue [Fatal]
  - Pneumonia [Fatal]
  - Septic shock [Unknown]
  - Staphylococcal infection [Unknown]
  - Hypoxia [Unknown]
  - Dyspnoea [Fatal]
